FAERS Safety Report 11101747 (Version 1)
Quarter: 2015Q2

REPORT INFORMATION
  Report Type: Spontaneous
  Country: FR (occurrence: FR)
  Receive Date: 20150508
  Receipt Date: 20150508
  Transmission Date: 20150821
  Serious: Yes (Other)
  Sender: FDA-Public Use
  Company Number: PHHY2015FR054345

PATIENT
  Age: 81 Year
  Sex: Male

DRUGS (5)
  1. HARPAGOPHYTUM PROCUMBENS [Concomitant]
     Indication: OSTEOARTHRITIS
     Route: 065
  2. PRAVASTATIN [Concomitant]
     Active Substance: PRAVASTATIN\PRAVASTATIN SODIUM
     Indication: BLOOD CHOLESTEROL INCREASED
     Dosage: 0.5 DF, BID
     Route: 048
  3. VALSARTAN SANDOZ [Suspect]
     Active Substance: VALSARTAN
     Indication: HYPERTENSION
     Dosage: 1 DF, QD
     Route: 048
     Dates: start: 2012, end: 20150421
  4. PIASCLEDINE 300 [Concomitant]
     Indication: OSTEOARTHRITIS
     Dosage: 1 DF, QD
     Route: 048
  5. FINASTERIDE. [Concomitant]
     Active Substance: FINASTERIDE
     Indication: ANDROGENETIC ALOPECIA
     Dosage: 1 MG, QD
     Route: 048

REACTIONS (7)
  - Hiccups [Unknown]
  - Weight decreased [Unknown]
  - Confusional state [Recovered/Resolved]
  - Oedema peripheral [Recovered/Resolved]
  - Hyponatraemia [Recovered/Resolved]
  - Asthenia [Recovered/Resolved]
  - Vertigo [Recovered/Resolved]

NARRATIVE: CASE EVENT DATE: 20150415
